FAERS Safety Report 9626561 (Version 1)
Quarter: 2013Q4

REPORT INFORMATION
  Report Type: Spontaneous
  Country: BR (occurrence: BR)
  Receive Date: 20131016
  Receipt Date: 20131016
  Transmission Date: 20140711
  Serious: Yes (Other)
  Sender: FDA-Public Use
  Company Number: BR-ASTRAZENECA-2013SE74876

PATIENT
  Age: 23 Year
  Sex: Female
  Weight: 65 kg

DRUGS (5)
  1. YAZ [Concomitant]
     Indication: MENSTRUAL DISORDER
  2. YAZ [Concomitant]
     Indication: PREMENSTRUAL SYNDROME
  3. PYLORIPAC [Concomitant]
     Indication: HELICOBACTER INFECTION
     Dates: start: 2013, end: 2013
  4. LANSOPRAZOLE [Concomitant]
     Indication: HELICOBACTER INFECTION
     Dates: start: 2013, end: 2013
  5. SYMBICORT [Suspect]
     Indication: ASTHMA
     Dosage: DAILY
     Route: 055
     Dates: start: 201309

REACTIONS (2)
  - Helicobacter infection [Unknown]
  - Menstruation delayed [Not Recovered/Not Resolved]
